FAERS Safety Report 10601789 (Version 2)
Quarter: 2014Q4

REPORT INFORMATION
  Report Type: Spontaneous
  Country: US (occurrence: None)
  Receive Date: 20141120
  Receipt Date: 20141215
  Transmission Date: 20150529
  Serious: Yes (Other)
  Sender: FDA-Public Use
  Company Number: 2014-US-014952

PATIENT
  Sex: Female

DRUGS (1)
  1. XYREM [Suspect]
     Active Substance: SODIUM OXYBATE
     Indication: NARCOLEPSY
     Dosage: 3 G,  BID, ORAL
     Route: 048
     Dates: start: 200712, end: 200802

REACTIONS (7)
  - Sleep apnoea syndrome [None]
  - Anxiety [None]
  - Hypertension [None]
  - Type 2 diabetes mellitus [None]
  - Depression [None]
  - Gastrooesophageal reflux disease [None]
  - Arthritis [None]
